FAERS Safety Report 25814119 (Version 1)
Quarter: 2025Q3

REPORT INFORMATION
  Report Type: Spontaneous
  Country: JP (occurrence: JP)
  Receive Date: 20250917
  Receipt Date: 20250917
  Transmission Date: 20251021
  Serious: Yes (Death)
  Sender: MERCK SHARP & DOHME LLC
  Company Number: JP-009507513-2280712

PATIENT
  Age: 8 Decade
  Sex: Male

DRUGS (3)
  1. KEYTRUDA [Suspect]
     Active Substance: PEMBROLIZUMAB
     Indication: Bile duct cancer
     Dosage: 200MG ONCE EVERY 3WEEKS, 4 COURSES
     Route: 041
     Dates: start: 202501, end: 202505
  2. GEMZAR [Suspect]
     Active Substance: GEMCITABINE HYDROCHLORIDE
     Indication: Bile duct cancer
     Route: 041
     Dates: start: 202501, end: 202505
  3. CISPLATIN [Suspect]
     Active Substance: CISPLATIN
     Indication: Bile duct cancer
     Route: 041
     Dates: start: 202501, end: 202505

REACTIONS (5)
  - Malignant neoplasm progression [Fatal]
  - Malaise [Unknown]
  - Asthenia [Unknown]
  - Hypoglycaemia [Unknown]
  - Malnutrition [Unknown]

NARRATIVE: CASE EVENT DATE: 20250101
